FAERS Safety Report 24403839 (Version 1)
Quarter: 2024Q4

REPORT INFORMATION
  Report Type: Spontaneous
  Country: US (occurrence: None)
  Receive Date: 20241007
  Receipt Date: 20241007
  Transmission Date: 20250114
  Serious: No
  Sender: ENCUBE ETHICALS
  Company Number: US-Encube-001353

PATIENT
  Sex: Male

DRUGS (1)
  1. DESONIDE [Suspect]
     Active Substance: DESONIDE
     Indication: Acrochordon
     Dates: start: 20240919, end: 202409

REACTIONS (3)
  - Eye swelling [Not Recovered/Not Resolved]
  - Ocular hyperaemia [Not Recovered/Not Resolved]
  - Off label use [Unknown]

NARRATIVE: CASE EVENT DATE: 20240901
